FAERS Safety Report 4706588-5 (Version None)
Quarter: 2005Q3

REPORT INFORMATION
  Report Type: 
  Country: None (occurrence: None)
  Receive Date: 20050705
  Receipt Date: 20050623
  Transmission Date: 20060218
  Serious: Yes (Hospitalization)
  Sender: FDA-Public Use
  Company Number: 200511351DE

PATIENT
  Age: 74 Year
  Sex: Male
  Weight: 74 kg

DRUGS (6)
  1. CODE UNBROKEN [Suspect]
     Indication: MULTIPLE SYSTEM ATROPHY
     Dosage: DOSE: 2-0-2
     Route: 048
     Dates: start: 20010329
  2. MADOPAR [Concomitant]
     Indication: MULTIPLE SYSTEM ATROPHY
     Route: 048
  3. DOMPERIDON [Concomitant]
     Indication: NAUSEA
     Route: 048
  4. DIGITOXIN TAB [Concomitant]
     Indication: CARDIAC FAILURE
     Route: 048
  5. ENALAPRIL MALEATE [Concomitant]
     Indication: HYPERTENSION
     Route: 048
  6. FUROSEMIDE [Concomitant]
     Indication: HYPERTENSION
     Route: 048

REACTIONS (13)
  - ABDOMINAL PAIN [None]
  - BACK PAIN [None]
  - BLOOD BILIRUBIN INCREASED [None]
  - CHROMATURIA [None]
  - FAECES DISCOLOURED [None]
  - FAECES PALE [None]
  - FLATULENCE [None]
  - GAMMA-GLUTAMYLTRANSFERASE INCREASED [None]
  - HAEMATOCRIT DECREASED [None]
  - HAEMOGLOBIN DECREASED [None]
  - LIPASE INCREASED [None]
  - LUMBAR VERTEBRAL FRACTURE [None]
  - PATHOLOGICAL FRACTURE [None]
